FAERS Safety Report 16546197 (Version 2)
Quarter: 2021Q3

REPORT INFORMATION
  Report Type: Spontaneous
  Country: US (occurrence: US)
  Receive Date: 20190709
  Receipt Date: 20210709
  Transmission Date: 20211014
  Serious: No
  Sender: FDA-Public Use
  Company Number: US-ASTELLAS-2018US038141

PATIENT
  Age: 8 Decade
  Sex: Female

DRUGS (1)
  1. MYRBETRIQ [Suspect]
     Active Substance: MIRABEGRON
     Indication: INCONTINENCE
     Route: 065
     Dates: start: 201808

REACTIONS (5)
  - Urinary tract infection [Unknown]
  - Blood pressure increased [Unknown]
  - Drug ineffective [Unknown]
  - Urinary incontinence [Unknown]
  - Micturition urgency [Unknown]
